FAERS Safety Report 4737987-3 (Version None)
Quarter: 2005Q3

REPORT INFORMATION
  Report Type: 
  Country: None (occurrence: None)
  Receive Date: 20050809
  Receipt Date: 20050405
  Transmission Date: 20060218
  Serious: Yes (Death, Hospitalization, Other)
  Sender: FDA-Public Use
  Company Number: 200513067GDDC

PATIENT
  Age: 79 Year
  Sex: Female

DRUGS (5)
  1. LANTUS [Suspect]
     Indication: HYPERTENSION
     Dosage: DOSE UNIT: UNITS
     Route: 058
     Dates: start: 20050318
  2. HUMULIN [Concomitant]
     Indication: DIABETES MELLITUS
     Route: 058
  3. ATACAND [Concomitant]
     Indication: HYPERTENSION
     Dosage: DOSE: 1 TAB
     Route: 048
  4. ALDOMET [Concomitant]
     Dosage: DOSE: 1 TAB
     Route: 048
  5. HUMULIN LENTE [Concomitant]

REACTIONS (4)
  - CARDIAC FAILURE CONGESTIVE [None]
  - HIP FRACTURE [None]
  - HYPERGLYCAEMIA [None]
  - HYPOGLYCAEMIA [None]
